FAERS Safety Report 26079799 (Version 1)
Quarter: 2025Q4

REPORT INFORMATION
  Report Type: Report from Study
  Country: US (occurrence: US)
  Receive Date: 20251123
  Receipt Date: 20251123
  Transmission Date: 20260118
  Serious: Yes (Hospitalization, Other)
  Sender: ABBVIE
  Company Number: US-ABBVIE-6556998

PATIENT
  Age: 51 Year
  Sex: Male

DRUGS (1)
  1. SKYRIZI [Suspect]
     Active Substance: RISANKIZUMAB-RZAA
     Indication: Crohn^s disease
     Route: 042
     Dates: start: 20250915, end: 20251021

REACTIONS (3)
  - Intestinal resection [Recovering/Resolving]
  - Internal haemorrhage [Recovering/Resolving]
  - Post procedural haematoma [Unknown]

NARRATIVE: CASE EVENT DATE: 20251001
